FAERS Safety Report 8775936 (Version 2)
Quarter: 2012Q4

REPORT INFORMATION
  Report Type: 
  Country: JP (occurrence: JP)
  Receive Date: 20120910
  Receipt Date: 20120919
  Transmission Date: 20130627
  Serious: Yes (Other)
  Sender: FDA-Public Use
  Company Number: JP-ROCHE-1113415

PATIENT
  Sex: Female

DRUGS (2)
  1. AVASTIN [Suspect]
     Indication: BREAST CANCER
     Route: 041
  2. PACLITAXEL [Suspect]
     Indication: BREAST CANCER
     Dosage: Dosage is uncertain
     Route: 041

REACTIONS (1)
  - Interstitial lung disease [Recovered/Resolved]
